FAERS Safety Report 7469863-X (Version None)
Quarter: 2011Q2

REPORT INFORMATION
  Report Type: 
  Country: None (occurrence: None)
  Receive Date: 20110510
  Receipt Date: 20110505
  Transmission Date: 20111010
  Serious: Yes (Life-Threatening, Hospitalization)
  Sender: FDA-Public Use
  Company Number: DK-ROCHE-735231

PATIENT
  Sex: Male

DRUGS (5)
  1. ELTROXIN [Concomitant]
     Dosage: REPORTED AS ELTROXIN (LEVOTHYROXINE SODIUM)
     Route: 048
  2. PREDNISOLONE [Concomitant]
     Indication: PSORIATIC ARTHROPATHY
     Dates: start: 20031014, end: 20100826
  3. AMLODIPINE BESYLATE [Concomitant]
     Route: 065
  4. ACTEMRA [Suspect]
     Route: 042
     Dates: start: 20090424
  5. ACTEMRA [Suspect]
     Route: 042
     Dates: start: 20091005

REACTIONS (4)
  - SEPTIC SHOCK [None]
  - WHITE BLOOD CELL COUNT DECREASED [None]
  - C-REACTIVE PROTEIN INCREASED [None]
  - SEPSIS [None]
